FAERS Safety Report 6266151-4 (Version None)
Quarter: 2009Q3

REPORT INFORMATION
  Report Type: 
  Country: None (occurrence: None)
  Receive Date: 20090713
  Receipt Date: 20090705
  Transmission Date: 20100115
  Serious: Yes (Death)
  Sender: FDA-Public Use
  Company Number: ID-AVENTIS-200916599GDDC

PATIENT
  Age: 57 Year
  Sex: Male
  Weight: 75 kg

DRUGS (4)
  1. TAXOTERE [Suspect]
     Route: 042
     Dates: start: 20090604, end: 20090604
  2. CARBOPLATIN [Suspect]
     Route: 042
     Dates: start: 20090604, end: 20090604
  3. CODE UNBROKEN [Concomitant]
     Dates: start: 20090605, end: 20090612
  4. UNKNOWN DRUG [Concomitant]

REACTIONS (1)
  - DIARRHOEA [None]
